FAERS Safety Report 4751923-5 (Version None)
Quarter: 2005Q3

REPORT INFORMATION
  Report Type: 
  Country: None (occurrence: None)
  Receive Date: 20050824
  Receipt Date: 20050713
  Transmission Date: 20060218
  Serious: Yes (Hospitalization)
  Sender: FDA-Public Use
  Company Number: US-MERCK-0507USA01864

PATIENT
  Age: 70 Year
  Sex: Male
  Weight: 72 kg

DRUGS (8)
  1. VIOXX [Suspect]
     Indication: OSTEOARTHRITIS
     Route: 048
     Dates: start: 19990501, end: 20000508
  2. VIOXX [Suspect]
     Route: 048
     Dates: start: 20000508, end: 20040901
  3. PLAVIX [Concomitant]
     Route: 065
  4. PROZAC [Concomitant]
     Route: 065
  5. PREVACID [Concomitant]
     Route: 065
  6. LORAZEPAM [Concomitant]
     Route: 065
  7. PRAVACHOL [Concomitant]
     Route: 065
  8. ALTACE [Concomitant]
     Route: 065

REACTIONS (2)
  - MYOCARDIAL INFARCTION [None]
  - ROTATOR CUFF SYNDROME [None]
